FAERS Safety Report 6534145-7 (Version None)
Quarter: 2010Q1

REPORT INFORMATION
  Report Type: 
  Country: None (occurrence: None)
  Receive Date: 20100112
  Receipt Date: 20100104
  Transmission Date: 20100710
  Serious: Yes (Hospitalization)
  Sender: FDA-Public Use
  Company Number: JP-BAYER-200943724GPV

PATIENT
  Age: 80 Year
  Sex: Female
  Weight: 54 kg

DRUGS (9)
  1. SORAFENIB [Suspect]
     Indication: HEPATIC NEOPLASM MALIGNANT
     Dosage: TOTAL DAILY DOSE: 800 MG
     Route: 048
     Dates: start: 20091212
  2. LIVACT [Concomitant]
     Indication: HYPOALBUMINAEMIA
  3. LACTULOSE [Concomitant]
     Indication: HYPERAMMONAEMIA
  4. PORTOLAC [Concomitant]
     Indication: HYPERAMMONAEMIA
  5. GASTER D [Concomitant]
     Indication: PROPHYLAXIS AGAINST GASTROINTESTINAL ULCER
  6. NORVASC [Concomitant]
     Indication: HYPERTENSION
  7. FERROMIA [Concomitant]
     Indication: ANAEMIA
  8. LAXOBERON [Concomitant]
     Indication: CONSTIPATION
  9. PENFILL R [Concomitant]
     Indication: PROPHYLAXIS AGAINST GASTROINTESTINAL ULCER

REACTIONS (1)
  - HEPATIC ENCEPHALOPATHY [None]
